FAERS Safety Report 7349593-5 (Version None)
Quarter: 2011Q1

REPORT INFORMATION
  Report Type: 
  Country: None (occurrence: None)
  Receive Date: 20110314
  Receipt Date: 20110303
  Transmission Date: 20110831
  Serious: Yes (Other)
  Sender: FDA-Public Use
  Company Number: DE-ASTRAZENECA-2011SE12382

PATIENT
  Age: 17 Year
  Sex: Male

DRUGS (2)
  1. SEROQUEL [Suspect]
     Indication: SCHIZOPHRENIA
     Route: 048
  2. SEROQUEL [Suspect]
     Route: 048

REACTIONS (4)
  - ARRHYTHMIA [None]
  - HYPERTENSION [None]
  - TREMOR [None]
  - TACHYCARDIA [None]
